FAERS Safety Report 25691393 (Version 2)
Quarter: 2025Q3

REPORT INFORMATION
  Report Type: Spontaneous
  Country: US (occurrence: US)
  Receive Date: 20250818
  Receipt Date: 20250908
  Transmission Date: 20251020
  Serious: Yes (Other)
  Sender: INCYTE
  Company Number: US-EVENT-003936

PATIENT
  Age: 70 Year

DRUGS (1)
  1. OPZELURA [Suspect]
     Active Substance: RUXOLITINIB PHOSPHATE
     Indication: Vitiligo
     Dosage: UNK, BID (APPLY TO AA TWICE A DAY)
     Route: 065

REACTIONS (2)
  - Ocular discomfort [Not Recovered/Not Resolved]
  - Intentional product use issue [Unknown]
